FAERS Safety Report 5061561-5 (Version None)
Quarter: 2006Q3

REPORT INFORMATION
  Report Type: 
  Country: None (occurrence: None)
  Receive Date: 20060721
  Receipt Date: 20060705
  Transmission Date: 20061208
  Serious: Yes (Other)
  Sender: FDA-Public Use
  Company Number: 2006BI007607

PATIENT
  Age: 40 Year
  Sex: Female

DRUGS (8)
  1. AVONEX [Suspect]
     Indication: MULTIPLE SCLEROSIS
     Dosage: 30 UG; QW; IM
     Route: 030
     Dates: start: 20040101
  2. METHADONE HCL [Concomitant]
  3. CYMBALTA [Concomitant]
  4. TRILEPTAL [Concomitant]
  5. PROTONIX [Concomitant]
  6. ABILIFY [Concomitant]
  7. LUNESTA [Concomitant]
  8. METOCLOPRAMIDE [Concomitant]

REACTIONS (1)
  - EPILEPSY [None]
